FAERS Safety Report 5908813-1 (Version None)
Quarter: 2008Q4

REPORT INFORMATION
  Report Type: 
  Country: None (occurrence: None)
  Receive Date: 20081006
  Receipt Date: 20080929
  Transmission Date: 20090506
  Serious: Yes (Hospitalization)
  Sender: FDA-Public Use
  Company Number: FR-AVENTIS-200813447FR

PATIENT
  Age: 67 Year
  Sex: Male

DRUGS (8)
  1. DAONIL [Suspect]
     Dosage: DOSE: 2.5 MG IN THE MORNING, 5 MG AT MIDDAY AND 5 MG IN THE EVENING
     Route: 048
     Dates: start: 20060901, end: 20080322
  2. VALSARTAN AND HYDROCHLOROTHIAZIDE [Suspect]
     Route: 048
     Dates: start: 19980101, end: 20080322
  3. LEXOMIL [Concomitant]
     Route: 048
     Dates: start: 19980101
  4. RIVOTRIL [Concomitant]
     Route: 048
     Dates: start: 19980101
  5. ART [Concomitant]
     Route: 048
     Dates: start: 19980101
  6. MECIR [Concomitant]
     Route: 048
     Dates: start: 19980101
  7. SOTALOL [Concomitant]
     Route: 048
     Dates: start: 19980101
  8. PROPOFAN                           /00765201/ [Concomitant]
     Route: 048
     Dates: start: 20060901

REACTIONS (1)
  - PANCREATITIS ACUTE [None]
